FAERS Safety Report 15789699 (Version 2)
Quarter: 2019Q1

REPORT INFORMATION
  Report Type: Spontaneous
  Country: AU (occurrence: AU)
  Receive Date: 20190104
  Receipt Date: 20190110
  Transmission Date: 20190417
  Serious: Yes (Life-Threatening, Hospitalization)
  Sender: FDA-Public Use
  Company Number: AU-PFIZER INC-2019003802

PATIENT
  Age: 44 Year
  Sex: Male

DRUGS (1)
  1. METHOTREXATE. [Suspect]
     Active Substance: METHOTREXATE
     Indication: RHEUMATOID ARTHRITIS
     Dosage: 10 MG, WEEKLY

REACTIONS (4)
  - Myocarditis bacterial [Recovered/Resolved]
  - Septic shock [Recovered/Resolved]
  - Staphylococcal infection [Recovered/Resolved]
  - Cardiac ventricular thrombosis [Recovered/Resolved]
